FAERS Safety Report 23127746 (Version 4)
Quarter: 2024Q3

REPORT INFORMATION
  Report Type: Spontaneous
  Country: US (occurrence: US)
  Receive Date: 20231031
  Receipt Date: 20240717
  Transmission Date: 20241017
  Serious: Yes (Other)
  Sender: BRISTOL MYERS SQUIBB
  Company Number: US-BRISTOL-MYERS SQUIBB COMPANY-2023-152603

PATIENT
  Age: 68 Year
  Sex: Female

DRUGS (1)
  1. ORENCIA [Suspect]
     Active Substance: ABATACEPT
     Indication: Product used for unknown indication
     Dosage: FREQ : INJECT 125MG ONCE PER WEEK
     Route: 058

REACTIONS (5)
  - Gallbladder disorder [Unknown]
  - Hernia [Unknown]
  - Weight decreased [Unknown]
  - Nasopharyngitis [Unknown]
  - Lip and/or oral cavity cancer [Unknown]
